FAERS Safety Report 14699807 (Version 2)
Quarter: 2018Q4

REPORT INFORMATION
  Report Type: Report from Study
  Country: JP (occurrence: JP)
  Receive Date: 20180330
  Receipt Date: 20181010
  Transmission Date: 20190204
  Serious: Yes (Death, Hospitalization, Other)
  Sender: FDA-Public Use
  Company Number: JP-009507513-1803JPN003140J

PATIENT
  Age: 70 Year
  Sex: Male
  Weight: 52 kg

DRUGS (9)
  1. KEYTRUDA [Suspect]
     Active Substance: PEMBROLIZUMAB
     Indication: TRANSITIONAL CELL CARCINOMA
     Dosage: 200 MG, Q3W
     Route: 041
     Dates: start: 20180131, end: 20180131
  2. MAGMITT [Concomitant]
     Active Substance: MAGNESIUM OXIDE
     Indication: CONSTIPATION
     Dosage: 330 MG, TID
     Route: 048
     Dates: start: 20171114, end: 20180216
  3. FAMOTIDINE. [Concomitant]
     Active Substance: FAMOTIDINE
     Indication: CHRONIC GASTRITIS
     Dosage: 20 MG, QD
     Route: 048
     Dates: start: 20171128, end: 20180216
  4. OXYCODONE [Concomitant]
     Active Substance: OXYCODONE
     Dosage: 60 MG, BID
     Route: 048
     Dates: start: 20180206, end: 20180211
  5. OLANZAPINE. [Concomitant]
     Active Substance: OLANZAPINE
     Indication: VOMITING
     Dosage: 5 MG, QD
     Route: 048
     Dates: start: 20180109, end: 20180212
  6. NAIXAN [Concomitant]
     Active Substance: NAPROXEN SODIUM
     Indication: TUMOUR ASSOCIATED FEVER
     Dosage: 100 MG, TID
     Route: 048
     Dates: start: 20171213, end: 20180216
  7. BELSOMRA [Concomitant]
     Active Substance: SUVOREXANT
     Indication: INSOMNIA
     Dosage: 15 MG, QD
     Route: 048
     Dates: start: 20180111, end: 20180216
  8. OXIFAST [Suspect]
     Active Substance: OXYCODONE
     Indication: PAIN
     Dosage: 150 MG, QD
     Route: 065
     Dates: start: 20180218, end: 20180303
  9. OXYCODONE [Concomitant]
     Active Substance: OXYCODONE
     Indication: PAIN
     Dosage: 50 MG, BID
     Route: 048
     Dates: start: 20171114, end: 20180205

REACTIONS (4)
  - Delirium [Not Recovered/Not Resolved]
  - Oedema peripheral [Not Recovered/Not Resolved]
  - Somnolence [Not Recovered/Not Resolved]
  - Malignant neoplasm progression [Fatal]

NARRATIVE: CASE EVENT DATE: 20180206
